FAERS Safety Report 11899229 (Version 1)
Quarter: 2016Q1

REPORT INFORMATION
  Report Type: Spontaneous
  Country: US (occurrence: US)
  Receive Date: 20160108
  Receipt Date: 20160108
  Transmission Date: 20160526
  Serious: No
  Sender: FDA-Public Use
  Company Number: US-PFIZER INC-2015476381

PATIENT
  Age: 77 Year
  Sex: Female
  Weight: 63.95 kg

DRUGS (2)
  1. KOWELL [Suspect]
     Active Substance: AZULENE\MAGNESIUM ALUMINUM SILICATE
     Indication: RENAL CANCER
     Dosage: 50 MG, CYCLIC (DAY 1-14 Q 21 DAYS)
     Route: 048
     Dates: start: 20151128
  2. SUTENT [Suspect]
     Active Substance: SUNITINIB MALATE
     Indication: RENAL CANCER
     Dosage: 50 MG, CYCLIC (DAY 1-14 Q 21 DAYS)
     Route: 048
     Dates: start: 20151128

REACTIONS (1)
  - Urinary tract infection [Unknown]
